FAERS Safety Report 8045591-7 (Version None)
Quarter: 2012Q1

REPORT INFORMATION
  Report Type: 
  Country: None (occurrence: None)
  Receive Date: 20120112
  Receipt Date: 20120112
  Transmission Date: 20120608
  Serious: Yes (Hospitalization, Other)
  Sender: FDA-Public Use
  Company Number: None

PATIENT
  Age: 77 Year
  Sex: Male
  Weight: 66.6788 kg

DRUGS (1)
  1. PRAVASTATIN [Suspect]
     Indication: CARDIAC DISORDER
     Dosage: 10 MG 1 DAILY
     Dates: start: 20110926, end: 20111224

REACTIONS (2)
  - RHABDOMYOLYSIS [None]
  - PAIN IN EXTREMITY [None]
